FAERS Safety Report 5414249-2 (Version None)
Quarter: 2007Q3

REPORT INFORMATION
  Report Type: 
  Country: None (occurrence: None)
  Receive Date: 20070814
  Receipt Date: 20070803
  Transmission Date: 20080115
  Serious: Yes (Hospitalization)
  Sender: FDA-Public Use
  Company Number: JP-PFIZER INC-2007064932

PATIENT
  Age: 76 Year
  Sex: Male

DRUGS (5)
  1. AMLODIPINE [Suspect]
     Route: 048
  2. LASIX [Concomitant]
     Route: 048
  3. LONGES [Concomitant]
     Route: 048
  4. ARTIST [Concomitant]
     Route: 048
  5. SALOBEL [Concomitant]
     Route: 048

REACTIONS (1)
  - INTERSTITIAL LUNG DISEASE [None]
